FAERS Safety Report 23675385 (Version 7)
Quarter: 2024Q4

REPORT INFORMATION
  Report Type: Report from Study
  Country: US (occurrence: US)
  Receive Date: 20240327
  Receipt Date: 20241020
  Transmission Date: 20250115
  Serious: Yes (Other)
  Sender: ABBVIE
  Company Number: US-ABBVIE-5691282

PATIENT
  Age: 68 Year
  Sex: Female

DRUGS (2)
  1. RINVOQ [Suspect]
     Active Substance: UPADACITINIB
     Indication: Rheumatoid arthritis
     Route: 048
     Dates: start: 20220506
  2. RINVOQ [Suspect]
     Active Substance: UPADACITINIB
     Indication: Rheumatoid arthritis
     Route: 048
     Dates: end: 202409

REACTIONS (11)
  - Breast cancer metastatic [Not Recovered/Not Resolved]
  - Rib fracture [Not Recovered/Not Resolved]
  - Aortic aneurysm [Not Recovered/Not Resolved]
  - Metastases to bone [Not Recovered/Not Resolved]
  - Bone cancer [Not Recovered/Not Resolved]
  - Pain [Unknown]
  - Lung neoplasm malignant [Not Recovered/Not Resolved]
  - Spinal fracture [Recovering/Resolving]
  - Multiple fractures [Not Recovered/Not Resolved]
  - Sternal fracture [Not Recovered/Not Resolved]
  - Pelvic fracture [Not Recovered/Not Resolved]

NARRATIVE: CASE EVENT DATE: 20240101
